FAERS Safety Report 15088101 (Version 2)
Quarter: 2018Q3

REPORT INFORMATION
  Report Type: Report from Study
  Country: US (occurrence: US)
  Receive Date: 20180629
  Receipt Date: 20180704
  Transmission Date: 20181010
  Serious: Yes (Hospitalization)
  Sender: FDA-Public Use
  Company Number: US-BRISTOL-MYERS SQUIBB COMPANY-BMS-2018-058944

PATIENT
  Age: 59 Year
  Sex: Female
  Weight: 99.3 kg

DRUGS (2)
  1. NIVOLUMAB [Suspect]
     Active Substance: NIVOLUMAB
     Indication: INFLAMMATORY CARCINOMA OF THE BREAST
     Dosage: 480 MG, Q4WK
     Route: 065
     Dates: start: 20171031, end: 20180521
  2. IPILIMUMAB [Suspect]
     Active Substance: IPILIMUMAB
     Indication: INFLAMMATORY CARCINOMA OF THE BREAST
     Dosage: 1 MG/KG, Q6WK
     Route: 065
     Dates: start: 20171031, end: 20180604

REACTIONS (4)
  - Dyspnoea [Recovered/Resolved]
  - Pleural effusion [Recovered/Resolved]
  - Atelectasis [Recovered/Resolved with Sequelae]
  - Pneumonitis [Recovered/Resolved]

NARRATIVE: CASE EVENT DATE: 20180618
